FAERS Safety Report 5765139-7 (Version None)
Quarter: 2008Q2

REPORT INFORMATION
  Report Type: 
  Country: None (occurrence: None)
  Receive Date: 20080611
  Receipt Date: 20080602
  Transmission Date: 20081010
  Serious: Yes (Hospitalization)
  Sender: FDA-Public Use
  Company Number: SE-TEVA-172348ISR

PATIENT
  Sex: Male

DRUGS (7)
  1. FLUOROURACIL [Suspect]
     Indication: GASTRIC CANCER
     Route: 042
     Dates: start: 20071203, end: 20080101
  2. FLUOROURACIL [Suspect]
     Route: 042
     Dates: start: 20080318, end: 20080520
  3. OXALIPLATIN [Suspect]
     Indication: GASTRIC CANCER
     Route: 040
     Dates: end: 20080429
  4. EPIRUBICIN [Suspect]
     Indication: GASTRIC CANCER
     Route: 042
     Dates: end: 20080429
  5. CIPROFLOXACIN HCL [Concomitant]
     Indication: URINARY TRACT INFECTION
     Route: 048
     Dates: start: 20080524, end: 20080525
  6. FENTANYL [Concomitant]
     Route: 062
  7. KABIVEN [Concomitant]
     Indication: PARENTERAL NUTRITION
     Route: 042

REACTIONS (2)
  - RENAL FAILURE ACUTE [None]
  - URETERIC DILATATION [None]
